FAERS Safety Report 21673615 (Version 1)
Quarter: 2022Q4

REPORT INFORMATION
  Report Type: Spontaneous
  Country: US (occurrence: None)
  Receive Date: 20221202
  Receipt Date: 20221202
  Transmission Date: 20230113
  Serious: No
  Sender: FDA-Public Use
  Company Number: 2022A373099

PATIENT
  Age: 50 Year
  Sex: Female
  Weight: 104.3 kg

DRUGS (1)
  1. BYDUREON BCISE [Suspect]
     Active Substance: EXENATIDE
     Indication: Diabetes mellitus
     Route: 058
     Dates: start: 20221009, end: 20221110

REACTIONS (6)
  - Injection site thrombosis [Recovering/Resolving]
  - Contusion [Unknown]
  - Injection site reaction [Unknown]
  - Injection site haemorrhage [Recovering/Resolving]
  - Product dose omission issue [Unknown]
  - Incorrect dose administered by product [Unknown]

NARRATIVE: CASE EVENT DATE: 20221009
